FAERS Safety Report 9291704 (Version 1)
Quarter: 2013Q2

REPORT INFORMATION
  Report Type: Spontaneous
  Country: US (occurrence: US)
  Receive Date: 20130516
  Receipt Date: 20130516
  Transmission Date: 20140414
  Serious: Yes (Other)
  Sender: FDA-Public Use
  Company Number: US-AMGEN-USASP2013033970

PATIENT
  Age: 51 Year
  Sex: Female
  Weight: 86.17 kg

DRUGS (8)
  1. ENBREL [Suspect]
     Indication: PRODUCT USED FOR UNKNOWN INDICATION
     Dosage: 50 MG, QWK
     Route: 058
  2. LYRICA [Concomitant]
     Dosage: 75 MG, UNK
  3. CYMBALTA [Concomitant]
     Dosage: 20 MG, UNK
  4. ESTRADIOL [Concomitant]
     Dosage: 1 MG, UNK
  5. LORAZEPAM [Concomitant]
     Dosage: 2 MG, UNK
  6. CETRIZINE [Concomitant]
     Dosage: 10 MG, UNK
  7. HYDROCODONE/APAP [Concomitant]
     Dosage: 5-500 MG
  8. FISH OIL [Concomitant]
     Dosage: UNK

REACTIONS (1)
  - Tooth infection [Recovered/Resolved]
